FAERS Safety Report 18563629 (Version 2)
Quarter: 2020Q4

REPORT INFORMATION
  Report Type: Spontaneous
  Country: US (occurrence: US)
  Receive Date: 20201201
  Receipt Date: 20201222
  Transmission Date: 20210114
  Serious: Yes (Other)
  Sender: FDA-Public Use
  Company Number: US-CIPLA LTD.-2020US08912

PATIENT

DRUGS (7)
  1. ESTRADIOL. [Concomitant]
     Active Substance: ESTRADIOL
     Indication: VULVOVAGINAL DRYNESS
     Dosage: 10 MICROGRAM, THREE TIMES A WEEK, 5 YEARS
     Route: 065
  2. CITRACAL [CALCIUM;COLECALCIFEROL] [Concomitant]
     Indication: BONE DISORDER
     Dosage: 600 MILLIGRAM, DAILY, 10 YEARS
     Route: 065
  3. VITAMIN B12 [Concomitant]
     Active Substance: CYANOCOBALAMIN
     Indication: VITAMIN SUPPLEMENTATION
     Dosage: 1000 MICROGRAM, DAILY, 5 YEARS
     Route: 065
  4. TOPIRAMATE. [Suspect]
     Active Substance: TOPIRAMATE
     Indication: FAMILIAL TREMOR
     Dosage: 25 MILLIGRAM, TWO IN THE MORNING AND ONE IN THE EVENING
     Route: 048
     Dates: start: 20200817, end: 20201101
  5. VITAMIN D [COLECALCIFEROL] [Concomitant]
     Active Substance: CHOLECALCIFEROL
     Indication: BONE DISORDER
     Dosage: 5000 INTERNATIONAL UNIT, 2 PILLS ONCE A MONTH, 8 YEARS
     Route: 065
  6. ROSUVASTATIN. [Concomitant]
     Active Substance: ROSUVASTATIN
     Indication: BLOOD CHOLESTEROL INCREASED
     Dosage: 10 MILLIGRAM, DAILY, MANY YEARS
     Route: 065
  7. SYNTHROID [Concomitant]
     Active Substance: LEVOTHYROXINE SODIUM
     Indication: THYROID DISORDER
     Dosage: 75 MCG, DAILY
     Route: 065
     Dates: start: 1998

REACTIONS (7)
  - Product use in unapproved indication [Unknown]
  - Paraesthesia [Recovered/Resolved]
  - Headache [Recovered/Resolved]
  - Off label use [Unknown]
  - Blood pressure increased [Recovered/Resolved]
  - Hypoaesthesia [Recovered/Resolved]
  - Retinal haemorrhage [Recovered/Resolved]

NARRATIVE: CASE EVENT DATE: 2020
